FAERS Safety Report 7110923-0 (Version None)
Quarter: 2010Q4

REPORT INFORMATION
  Report Type: 
  Country: None (occurrence: None)
  Receive Date: 20101118
  Receipt Date: 20101014
  Transmission Date: 20110411
  Serious: Yes (Other)
  Sender: FDA-Public Use
  Company Number: FR-AMGEN-FRASP2010000067

PATIENT

DRUGS (1)
  1. ENBREL [Suspect]
     Route: 058
     Dates: start: 20080101

REACTIONS (2)
  - GRANULOMATOUS LIVER DISEASE [None]
  - TUBERCULIN TEST POSITIVE [None]
